FAERS Safety Report 5705816-7 (Version None)
Quarter: 2008Q2

REPORT INFORMATION
  Report Type: 
  Country: None (occurrence: None)
  Receive Date: 20080415
  Receipt Date: 20080408
  Transmission Date: 20081010
  Serious: Yes (Hospitalization)
  Sender: FDA-Public Use
  Company Number: BR-ASTRAZENECA-2008UW07293

PATIENT
  Age: 89 Year
  Sex: Female
  Weight: 60 kg

DRUGS (6)
  1. ARIMIDEX [Suspect]
     Indication: BREAST CANCER
     Route: 048
     Dates: start: 20070801
  2. NOLVADEX [Suspect]
     Indication: BREAST CANCER
     Route: 048
     Dates: start: 20040301, end: 20070801
  3. AKINETON [Concomitant]
     Indication: DEPRESSION
     Route: 048
     Dates: start: 20010101
  4. RISPERIDONE [Concomitant]
     Indication: DEPRESSION
     Route: 048
     Dates: start: 20010101
  5. SERTRALINE [Concomitant]
     Indication: DEPRESSION
     Route: 048
     Dates: start: 20010101
  6. NEULEPTIL [Concomitant]
     Indication: DEPRESSION
     Route: 048
     Dates: start: 20010101

REACTIONS (16)
  - ANAEMIA [None]
  - CHOKING [None]
  - DEMENTIA ALZHEIMER'S TYPE [None]
  - DIABETES MELLITUS [None]
  - DIARRHOEA [None]
  - DYSPNOEA [None]
  - FALL [None]
  - GAIT DISTURBANCE [None]
  - METASTASES TO BONE [None]
  - METASTASES TO LIVER [None]
  - PAIN IN EXTREMITY [None]
  - PALLOR [None]
  - PNEUMONIA [None]
  - SECRETION DISCHARGE [None]
  - SOMNOLENCE [None]
  - URINARY TRACT INFECTION [None]
